FAERS Safety Report 4370710-3 (Version None)
Quarter: 2004Q2

REPORT INFORMATION
  Report Type: 
  Country: None (occurrence: None)
  Receive Date: 20040604
  Receipt Date: 20040514
  Transmission Date: 20050107
  Serious: Yes (Hospitalization)
  Sender: FDA-Public Use
  Company Number: 200411961FR

PATIENT
  Age: 62 Year
  Sex: Male

DRUGS (1)
  1. TELFAST [Suspect]
     Route: 048
     Dates: start: 20040330, end: 20040330

REACTIONS (3)
  - STAPHYLOCOCCAL INFECTION [None]
  - STREPTOCOCCAL INFECTION [None]
  - TOXIC EPIDERMAL NECROLYSIS [None]
